FAERS Safety Report 8901517 (Version 1)
Quarter: 2012Q4

REPORT INFORMATION
  Report Type: 
  Country: DE (occurrence: DE)
  Receive Date: 20121108
  Receipt Date: 20121108
  Transmission Date: 20130627
  Serious: Yes (Other)
  Sender: FDA-Public Use
  Company Number: DE-UCBSA-070478

PATIENT
  Sex: Female

DRUGS (2)
  1. NEUPRO [Suspect]
     Indication: RESTLESS LEGS SYNDROME
     Dosage: DAILY DOSE: 6MG, FROM 0 TO 38.3 GESTATIONAL WEEKS
     Route: 064
  2. NEUPRO [Suspect]
     Indication: RESTLESS LEGS SYNDROME
     Dosage: DAILY DOSE: 6MG
     Route: 063

REACTIONS (5)
  - Breech presentation [Recovered/Resolved]
  - Growth retardation [Unknown]
  - Small for dates baby [Unknown]
  - Foetal exposure during pregnancy [Recovered/Resolved]
  - Exposure during breast feeding [Unknown]
